FAERS Safety Report 23863054 (Version 1)
Quarter: 2024Q2

REPORT INFORMATION
  Report Type: Spontaneous
  Country: US (occurrence: US)
  Receive Date: 20240516
  Receipt Date: 20240516
  Transmission Date: 20240716
  Serious: No
  Sender: FDA-Public Use
  Company Number: US-002147023-NVSC2024US103855

PATIENT
  Sex: Male

DRUGS (3)
  1. LEQVIO [Suspect]
     Active Substance: INCLISIRAN SODIUM
     Indication: Low density lipoprotein decreased
     Dosage: 284 MG (DAY 0)
     Route: 058
     Dates: start: 20240202
  2. LEQVIO [Suspect]
     Active Substance: INCLISIRAN SODIUM
     Dosage: 284 MG (DAY 90)
     Route: 058
  3. LEQVIO [Suspect]
     Active Substance: INCLISIRAN SODIUM
     Dosage: 284 MG (EVERY 6 MONTHS AFTERWARDS)
     Route: 058

REACTIONS (5)
  - Arthralgia [Recovering/Resolving]
  - Hypoglycaemia [Recovering/Resolving]
  - Paraesthesia [Recovering/Resolving]
  - Hyperhidrosis [Recovering/Resolving]
  - Headache [Recovering/Resolving]
